FAERS Safety Report 5800993-1 (Version None)
Quarter: 2008Q3

REPORT INFORMATION
  Report Type: 
  Country: None (occurrence: None)
  Receive Date: 20080702
  Receipt Date: 20080623
  Transmission Date: 20090109
  Serious: Yes (Death)
  Sender: FDA-Public Use
  Company Number: 2008AL007489

PATIENT
  Age: 69 Year
  Sex: Male

DRUGS (1)
  1. DIGOXIN [Suspect]
     Indication: ATRIAL FIBRILLATION
     Dosage: DAILY PO
     Route: 048
     Dates: end: 20080201

REACTIONS (4)
  - ASTHENIA [None]
  - CORONARY ARTERY DISEASE [None]
  - DIZZINESS [None]
  - NAUSEA [None]
